FAERS Safety Report 22272770 (Version 2)
Quarter: 2023Q2

REPORT INFORMATION
  Report Type: Report from Study
  Country: US (occurrence: US)
  Receive Date: 20230502
  Receipt Date: 20230519
  Transmission Date: 20230721
  Serious: Yes (Other)
  Sender: FDA-Public Use
  Company Number: US-ABBVIE-4747803

PATIENT
  Age: 76 Year
  Sex: Female

DRUGS (2)
  1. IMBRUVICA [Suspect]
     Active Substance: IBRUTINIB
     Indication: Chronic lymphocytic leukaemia
     Route: 048
     Dates: start: 20230323
  2. LASIX [Concomitant]
     Active Substance: FUROSEMIDE
     Indication: Pleural effusion

REACTIONS (5)
  - Pleural effusion [Unknown]
  - Dyspnoea [Recovering/Resolving]
  - Haemorrhage [Unknown]
  - Blood pressure increased [Recovered/Resolved with Sequelae]
  - Platelet count decreased [Unknown]

NARRATIVE: CASE EVENT DATE: 20230413
